FAERS Safety Report 10084816 (Version 1)
Quarter: 2014Q2

REPORT INFORMATION
  Report Type: Spontaneous
  Country: US (occurrence: US)
  Receive Date: 20140417
  Receipt Date: 20140417
  Transmission Date: 20141212
  Serious: Yes (Other)
  Sender: FDA-Public Use
  Company Number: US-ELI_LILLY_AND_COMPANY-US201404002037

PATIENT
  Sex: Male

DRUGS (1)
  1. AXIRON [Suspect]
     Indication: BLOOD TESTOSTERONE DECREASED
     Dosage: UNK, UNKNOWN
     Route: 061

REACTIONS (2)
  - Hepatic enzyme increased [Unknown]
  - Blood testosterone decreased [Unknown]
